FAERS Safety Report 5235545-8 (Version None)
Quarter: 2007Q1

REPORT INFORMATION
  Report Type: 
  Country: None (occurrence: None)
  Receive Date: 20070207
  Receipt Date: 20070207
  Transmission Date: 20070707
  Serious: Yes (Other)
  Sender: FDA-Public Use
  Company Number: None

PATIENT
  Age: 27 Year
  Sex: Female
  Weight: 58.9676 kg

DRUGS (1)
  1. ALDARA [Suspect]
     Indication: ANOGENITAL WARTS
     Dosage: ONE PACKET   3 NIGHTS A WEEK  TOP
     Route: 061
     Dates: start: 20070129, end: 20070202

REACTIONS (8)
  - APPLICATION SITE PAIN [None]
  - APPLICATION SITE ULCER [None]
  - DYSURIA [None]
  - INFLUENZA LIKE ILLNESS [None]
  - NASOPHARYNGITIS [None]
  - SINUSITIS [None]
  - SWELLING [None]
  - VULVOVAGINAL DISCOMFORT [None]
